FAERS Safety Report 6105707-6 (Version None)
Quarter: 2009Q1

REPORT INFORMATION
  Report Type: 
  Country: None (occurrence: None)
  Receive Date: 20090306
  Receipt Date: 20090302
  Transmission Date: 20090719
  Serious: Yes (Death, Hospitalization)
  Sender: FDA-Public Use
  Company Number: FR-AMGEN-US331094

PATIENT
  Sex: Male
  Weight: 100 kg

DRUGS (2)
  1. ENBREL [Suspect]
     Indication: PSORIASIS
     Route: 058
     Dates: start: 20070101
  2. UNSPECIFIED DIURETIC [Concomitant]
     Route: 065

REACTIONS (11)
  - CARDIAC ARREST [None]
  - CARDIAC FAILURE [None]
  - CONDITION AGGRAVATED [None]
  - DEHYDRATION [None]
  - FAILURE TO THRIVE [None]
  - GENERALISED OEDEMA [None]
  - GOUTY ARTHRITIS [None]
  - PULMONARY EMBOLISM [None]
  - PYREXIA [None]
  - RENAL FAILURE CHRONIC [None]
  - SEPSIS [None]
